FAERS Safety Report 9590045 (Version 1)
Quarter: 2013Q4

REPORT INFORMATION
  Report Type: Spontaneous
  Country: US (occurrence: US)
  Receive Date: 20131003
  Receipt Date: 20131003
  Transmission Date: 20140711
  Serious: No
  Sender: FDA-Public Use
  Company Number: US-AMGEN-USASP2012074434

PATIENT
  Age: 54 Year
  Sex: Male
  Weight: 102 kg

DRUGS (12)
  1. ENBREL [Suspect]
     Indication: RHEUMATOID ARTHRITIS
     Dosage: 50 MG, QWK
     Route: 058
  2. ORENCIA [Concomitant]
     Dosage: 125 MG/ML, UNK
     Route: 058
  3. LEFLUNOMIDE [Concomitant]
     Dosage: 10 MG, UNK
     Route: 048
  4. DICLOFENAC [Concomitant]
     Dosage: 100 MG, UNK
     Route: 048
  5. LISINOPRIL [Concomitant]
     Dosage: 10 MG, UNK
     Route: 048
  6. VITAMIN E                          /00110501/ [Concomitant]
     Dosage: 1000 UNIT, UNK
     Route: 048
  7. VITAMIN B COMPLEX [Concomitant]
     Dosage: UNK
     Route: 048
  8. ZINC [Concomitant]
     Dosage: 30 MG, UNK
     Route: 048
  9. VITAMIN D                          /00107901/ [Concomitant]
     Dosage: 2000 UNIT, UNK
     Route: 048
  10. MULTIVITAMINS, PLAIN [Concomitant]
     Dosage: UNK
     Route: 048
  11. VITAMIN C                          /00008001/ [Concomitant]
     Dosage: 500 MG SR UNK
     Route: 048
  12. ORENCIA [Concomitant]

REACTIONS (1)
  - Rheumatoid arthritis [Unknown]
